FAERS Safety Report 6568494-3 (Version None)
Quarter: 2010Q1

REPORT INFORMATION
  Report Type: 
  Country: None (occurrence: None)
  Receive Date: 20100203
  Receipt Date: 20100125
  Transmission Date: 20100710
  Serious: Yes (Death)
  Sender: FDA-Public Use
  Company Number: B0629694A

PATIENT
  Age: 28 Year
  Sex: Female

DRUGS (5)
  1. PAROXETINE HCL [Suspect]
     Dosage: 200MG PER DAY
     Route: 048
  2. AMOXAPINE [Suspect]
     Dosage: 1000MG PER DAY
     Route: 048
  3. CLONAZEPAM [Suspect]
     Dosage: 20MG PER DAY
     Route: 048
  4. ETIZOLAM [Suspect]
     Dosage: 10MG PER DAY
     Route: 048
  5. BROTIZOLAM [Suspect]
     Dosage: 2.5MG PER DAY
     Route: 048

REACTIONS (14)
  - ACIDOSIS [None]
  - BRADYCARDIA [None]
  - CLONIC CONVULSION [None]
  - COMPLETED SUICIDE [None]
  - DRUG TOXICITY [None]
  - HEART RATE IRREGULAR [None]
  - HEPATIC FUNCTION ABNORMAL [None]
  - HYPERCAPNIA [None]
  - MULTI-ORGAN FAILURE [None]
  - RENAL FAILURE ACUTE [None]
  - RESPIRATORY DEPRESSION [None]
  - RHABDOMYOLYSIS [None]
  - STATUS EPILEPTICUS [None]
  - VENTRICULAR ARRHYTHMIA [None]
